FAERS Safety Report 22244479 (Version 1)
Quarter: 2023Q2

REPORT INFORMATION
  Report Type: Spontaneous
  Country: RO (occurrence: RO)
  Receive Date: 20230424
  Receipt Date: 20230424
  Transmission Date: 20230722
  Serious: Yes (Other)
  Sender: FDA-Public Use
  Company Number: RO-AMGEN-ROUSP2023060215

PATIENT
  Age: 73 Year
  Sex: Male

DRUGS (11)
  1. FLUOROURACIL [Suspect]
     Active Substance: FLUOROURACIL
     Indication: Colorectal cancer metastatic
     Dosage: 400 MG/M2, BIW (400 MILLIGRAM/SQ. METER, BOLUS DAY 1, DAY 2)
     Route: 042
     Dates: start: 202010
  2. FLUOROURACIL [Suspect]
     Active Substance: FLUOROURACIL
     Dosage: 2400 MG/M2, BIW (2400 MILLIGRAM/SQ. METER)
     Route: 042
  3. OXALIPLATIN [Suspect]
     Active Substance: OXALIPLATIN
     Indication: Colorectal cancer metastatic
     Dosage: 85 MILLIGRAM/SQ. METER, Q2WK
     Route: 065
     Dates: start: 202010, end: 202106
  4. LEUCOVORIN CALCIUM [Suspect]
     Active Substance: LEUCOVORIN CALCIUM
     Indication: Colorectal cancer metastatic
     Dosage: 200 MG/M2, BIW (200 MILLIGRAM/SQ. METER, DAY 1- DAY 2)
     Route: 065
     Dates: start: 202010
  5. VECTIBIX [Suspect]
     Active Substance: PANITUMUMAB
     Indication: Colorectal cancer metastatic
     Dosage: 6 MG/KG, Q2W (UNK UNK, Q2WK)
     Route: 042
     Dates: start: 202010, end: 202012
  6. VECTIBIX [Suspect]
     Active Substance: PANITUMUMAB
     Dosage: UNK UNK, Q2W (UNK UNK, Q2WK (80 % OF THE DOSE)
     Route: 042
     Dates: start: 202101
  7. VECTIBIX [Suspect]
     Active Substance: PANITUMUMAB
     Dosage: UNK UNK, Q2W (UNK UNK, Q2WK (60 % OF THE DOSE)
     Route: 042
     Dates: start: 202103
  8. VECTIBIX [Suspect]
     Active Substance: PANITUMUMAB
     Dosage: 3.6 MG/KG, Q2W (3.6 MILLIGRAM/KILOGRAM, Q2WK)
     Route: 042
     Dates: start: 202106
  9. DOXYCYCLINE [Concomitant]
     Active Substance: DOXYCYCLINE
     Indication: Prophylaxis
     Dosage: 200 MG, QD (200 MILLIGRAM, QD)
     Route: 065
  10. BANEOCIN [Concomitant]
     Indication: Prophylaxis
     Dosage: UNK
     Route: 065
  11. PALONOSETRON [Concomitant]
     Active Substance: PALONOSETRON
     Indication: Antiemetic supportive care
     Dosage: UNK
     Route: 065

REACTIONS (2)
  - Nephropathy toxic [Unknown]
  - Dermatitis acneiform [Unknown]

NARRATIVE: CASE EVENT DATE: 20201101
